FAERS Safety Report 9735889 (Version 2)
Quarter: 2013Q4

REPORT INFORMATION
  Report Type: Spontaneous
  Country: US (occurrence: US)
  Receive Date: 20131206
  Receipt Date: 20131206
  Transmission Date: 20140711
  Serious: No
  Sender: FDA-Public Use
  Company Number: US-GILEAD-2009-0023701

PATIENT
  Sex: Female
  Weight: 93.44 kg

DRUGS (10)
  1. LETAIRIS [Suspect]
     Indication: PULMONARY ARTERIAL HYPERTENSION
     Route: 048
     Dates: start: 20090623
  2. REVATIO [Concomitant]
  3. VENTAVIS [Concomitant]
  4. COUMADIN [Concomitant]
  5. OXYGEN [Concomitant]
  6. LIMBREL [Concomitant]
  7. PERCOCET [Concomitant]
  8. TORSEMIDE [Concomitant]
  9. VICODIN [Concomitant]
  10. K-DUR [Concomitant]

REACTIONS (1)
  - Unevaluable event [Unknown]
